FAERS Safety Report 25125186 (Version 1)
Quarter: 2025Q1

REPORT INFORMATION
  Report Type: Spontaneous
  Country: US (occurrence: US)
  Receive Date: 20250326
  Receipt Date: 20250326
  Transmission Date: 20250408
  Serious: No
  Sender: ELI LILLY AND COMPANY
  Company Number: US-ELI_LILLY_AND_COMPANY-US202503021524

PATIENT
  Age: 69 Year
  Sex: Male

DRUGS (2)
  1. REZVOGLAR KWIKPEN [Suspect]
     Active Substance: INSULIN GLARGINE-AGLR
     Indication: Product used for unknown indication
     Route: 065
  2. REZVOGLAR KWIKPEN [Suspect]
     Active Substance: INSULIN GLARGINE-AGLR
     Route: 065

REACTIONS (3)
  - Accidental underdose [Unknown]
  - Incorrect product administration duration [Unknown]
  - Cough [Unknown]
